FAERS Safety Report 8956788 (Version 1)
Quarter: 2012Q4

REPORT INFORMATION
  Report Type: Spontaneous
  Country: US (occurrence: None)
  Receive Date: 20121205
  Receipt Date: 20121205
  Transmission Date: 20130627
  Serious: Yes (Hospitalization)
  Sender: FDA-Public Use
  Company Number: None

PATIENT
  Sex: Male

DRUGS (10)
  1. CLOZAPINE [Suspect]
     Indication: SCHIZOAFFECTIVE DISORDER
     Dosage: 25mg 1 at AM PO
     Route: 048
     Dates: start: 2008
  2. CLOZAPINE [Suspect]
     Dosage: 100 mg  4 at Bedtime  po
     Route: 048
     Dates: start: 2008
  3. RISPERDAL CONSTA [Concomitant]
  4. ZOLOFT [Concomitant]
  5. DEPAKOTE ER [Concomitant]
  6. PROPRANOLOL [Concomitant]
  7. COGENTIN [Concomitant]
  8. PRILOSEC [Concomitant]
  9. COLACE [Concomitant]
  10. KLONOPIN [Concomitant]

REACTIONS (5)
  - Pericarditis [None]
  - Pleurisy [None]
  - Myocarditis [None]
  - Pericardial effusion [None]
  - Pulmonary oedema [None]
